FAERS Safety Report 6585522-X (Version None)
Quarter: 2010Q1

REPORT INFORMATION
  Report Type: 
  Country: None (occurrence: None)
  Receive Date: 20100201
  Receipt Date: 20090909
  Transmission Date: 20100710
  Serious: Yes (Life-Threatening)
  Sender: FDA-Public Use
  Company Number: 8051015

PATIENT
  Sex: Female
  Weight: 72.5 kg

DRUGS (3)
  1. KEPPRA [Suspect]
     Indication: COMPLEX PARTIAL SEIZURES
     Dosage: (500 MG BID ORAL), (1000 MG BID ORAL), (1500 MG BID ORAL)
     Route: 048
     Dates: end: 20090101
  2. KEPPRA [Suspect]
     Indication: COMPLEX PARTIAL SEIZURES
     Dosage: (500 MG BID ORAL), (1000 MG BID ORAL), (1500 MG BID ORAL)
     Route: 048
     Dates: start: 20090101, end: 20090801
  3. KEPPRA [Suspect]
     Indication: COMPLEX PARTIAL SEIZURES
     Dosage: (500 MG BID ORAL), (1000 MG BID ORAL), (1500 MG BID ORAL)
     Route: 048
     Dates: start: 20080801

REACTIONS (2)
  - SUICIDAL IDEATION [None]
  - SUICIDE ATTEMPT [None]
